FAERS Safety Report 11953579 (Version 1)
Quarter: 2016Q1

REPORT INFORMATION
  Report Type: Report from Study
  Country: GE (occurrence: GE)
  Receive Date: 20160126
  Receipt Date: 20160126
  Transmission Date: 20160526
  Serious: Yes (Death, Other)
  Sender: FDA-Public Use
  Company Number: GE-GILEAD-2015-0190771

PATIENT
  Age: 55 Year
  Sex: Female

DRUGS (2)
  1. SOFOSBUVIR [Suspect]
     Active Substance: SOFOSBUVIR
     Indication: CHRONIC HEPATITIS C
     Dosage: 400 MG, UNK
     Route: 048
     Dates: start: 20150728, end: 20151207
  2. RIBAVIRIN. [Concomitant]
     Active Substance: RIBAVIRIN
     Indication: CHRONIC HEPATITIS C
     Dosage: 200 MG, UNK
     Route: 048
     Dates: start: 20150728, end: 20151207

REACTIONS (5)
  - Tremor [Unknown]
  - Asthenia [Unknown]
  - Pancytopenia [Unknown]
  - Oesophageal varices haemorrhage [Fatal]
  - Pyrexia [Unknown]

NARRATIVE: CASE EVENT DATE: 2015
